FAERS Safety Report 5929277-8 (Version None)
Quarter: 2008Q4

REPORT INFORMATION
  Report Type: 
  Country: None (occurrence: None)
  Receive Date: 20081023
  Receipt Date: 20081023
  Transmission Date: 20090506
  Serious: Yes (Other)
  Sender: FDA-Public Use
  Company Number: None

PATIENT
  Sex: Female

DRUGS (2)
  1. ZOFRAN [Suspect]
  2. . [Concomitant]

REACTIONS (3)
  - ABSCESS [None]
  - CATHETER SITE RELATED REACTION [None]
  - PAIN [None]
